FAERS Safety Report 10994274 (Version 2)
Quarter: 2015Q2

REPORT INFORMATION
  Report Type: Report from Study
  Country: US (occurrence: None)
  Receive Date: 20150403
  Receipt Date: 20150427
  Transmission Date: 20150821
  Serious: Yes (Hospitalization)
  Sender: FDA-Public Use
  Company Number: 2015-US-0065

PATIENT
  Age: 21 Year
  Sex: Female
  Weight: 52.62 kg

DRUGS (6)
  1. CISPLATIN (CISPLATIN) [Concomitant]
     Active Substance: CISPLATIN
  2. DEXAMETHASONE (DEXAMETHASONE) [Concomitant]
     Active Substance: DEXAMETHASONE
  3. SANCUSO [Suspect]
     Active Substance: GRANISETRON
     Indication: PROPHYLAXIS OF NAUSEA AND VOMITING
     Route: 061
     Dates: start: 20150218, end: 20150224
  4. SANCUSO [Suspect]
     Active Substance: GRANISETRON
     Indication: PROPHYLAXIS OF NAUSEA AND VOMITING
     Route: 061
     Dates: start: 20150224, end: 20150304
  5. RADIATION THERAPY [Concomitant]
     Active Substance: RADIATION THERAPY
  6. SANCUSO [Suspect]
     Active Substance: GRANISETRON
     Indication: PROPHYLAXIS OF NAUSEA AND VOMITING
     Route: 061
     Dates: start: 20150304, end: 20150311

REACTIONS (7)
  - Nausea [None]
  - Pain [None]
  - Urinary tract infection [None]
  - Anxiety [None]
  - Dehydration [None]
  - Pollakiuria [None]
  - Diarrhoea [None]

NARRATIVE: CASE EVENT DATE: 201502
